FAERS Safety Report 18261153 (Version 2)
Quarter: 2020Q4

REPORT INFORMATION
  Report Type: Report from Study
  Country: AU (occurrence: AU)
  Receive Date: 20200914
  Receipt Date: 20201002
  Transmission Date: 20210113
  Serious: Yes (Hospitalization, Other)
  Sender: FDA-Public Use
  Company Number: AU-AMGEN-AUSSL2020119528

PATIENT
  Sex: Male

DRUGS (5)
  1. KYPROLIS [Suspect]
     Active Substance: CARFILZOMIB
     Indication: PLASMA CELL MYELOMA RECURRENT
     Dosage: 56 MILLIGRAM/SQ. METER, 1,2,8,9,15 +16, 28DAYS PER CYCLE
     Route: 042
     Dates: start: 20200701, end: 20200702
  2. KYPROLIS [Suspect]
     Active Substance: CARFILZOMIB
     Dosage: 56 MILLIGRAM/SQ. METER, 1,2,8,9,15 +16, 28DAYS PER CYCLE
     Route: 042
     Dates: start: 20200715, end: 20200716
  3. DEXAMETHASONE. [Concomitant]
     Active Substance: DEXAMETHASONE
     Indication: PLASMA CELL MYELOMA
     Dosage: UNK
  4. KYPROLIS [Suspect]
     Active Substance: CARFILZOMIB
     Dosage: 56 MILLIGRAM/SQ. METER, 1,2,8,9,15 +16, 28DAYS PER CYCLE
     Route: 042
     Dates: start: 20200908, end: 20200908
  5. KYPROLIS [Suspect]
     Active Substance: CARFILZOMIB
     Dosage: 56 MILLIGRAM/SQ. METER, 1,2,8,9,15 +16, 28DAYS PER CYCLE
     Route: 042
     Dates: start: 202009, end: 20200929

REACTIONS (3)
  - Infection [Not Recovered/Not Resolved]
  - Thrombocytopenia [Recovering/Resolving]
  - Suspected COVID-19 [Not Recovered/Not Resolved]

NARRATIVE: CASE EVENT DATE: 20200702
